FAERS Safety Report 16951593 (Version 1)
Quarter: 2019Q4

REPORT INFORMATION
  Report Type: Spontaneous
  Country: US (occurrence: US)
  Receive Date: 20190903
  Receipt Date: 20190903
  Transmission Date: 20200122
  Serious: No
  Sender: FDA-Public Use
  Company Number: None

PATIENT
  Age: 60 Year
  Sex: Female
  Weight: 66.22 kg

DRUGS (2)
  1. ROSUVASTATIN 10MG [Suspect]
     Active Substance: ROSUVASTATIN
     Indication: LUNG DISORDER
     Route: 048
     Dates: start: 20190601, end: 20190625
  2. ATORVASTATIN 10 MG [Suspect]
     Active Substance: ATORVASTATIN
     Indication: LUNG DISORDER
     Route: 048
     Dates: start: 20190718, end: 20190729

REACTIONS (1)
  - Muscle spasms [None]
